FAERS Safety Report 6344591-2 (Version None)
Quarter: 2009Q3

REPORT INFORMATION
  Report Type: 
  Country: None (occurrence: None)
  Receive Date: 20090908
  Receipt Date: 20090826
  Transmission Date: 20100115
  Serious: Yes (Death)
  Sender: FDA-Public Use
  Company Number: MW-B.I. PHARMACEUTICALS,INC./RIDGEFIELD-2009-DE-05650GD

PATIENT
  Sex: Male

DRUGS (1)
  1. TRIOMUNE [Suspect]
     Indication: HIV INFECTION
     Route: 048
     Dates: start: 20070108

REACTIONS (1)
  - STEVENS-JOHNSON SYNDROME [None]
